FAERS Safety Report 5476513-0 (Version None)
Quarter: 2007Q3

REPORT INFORMATION
  Report Type: 
  Country: None (occurrence: None)
  Receive Date: 20070924
  Receipt Date: 20070209
  Transmission Date: 20080115
  Serious: Yes (Other)
  Sender: FDA-Public Use
  Company Number: PHEH2007US01387

PATIENT
  Age: 51 Year
  Sex: Female

DRUGS (1)
  1. FEMARA [Suspect]
     Indication: OVARIAN CANCER

REACTIONS (5)
  - ARTHRALGIA [None]
  - DEPRESSED MOOD [None]
  - HOT FLUSH [None]
  - INSOMNIA [None]
  - WEIGHT INCREASED [None]
